FAERS Safety Report 5625934-1 (Version None)
Quarter: 2008Q1

REPORT INFORMATION
  Report Type: 
  Country: None (occurrence: None)
  Receive Date: 20080212
  Receipt Date: 20080212
  Transmission Date: 20080703
  Serious: Yes (Other)
  Sender: FDA-Public Use
  Company Number: None

PATIENT
  Age: 53 Year
  Sex: Female
  Weight: 46.2669 kg

DRUGS (1)
  1. BOTOX [Suspect]
     Indication: SKIN WRINKLING
     Dates: start: 20071226, end: 20071226

REACTIONS (5)
  - DEFORMITY [None]
  - DEFORMITY OF ORBIT [None]
  - EYELID PTOSIS [None]
  - HEPATIC PAIN [None]
  - HEPATOCELLULAR INJURY [None]
